FAERS Safety Report 6215568-2 (Version None)
Quarter: 2009Q2

REPORT INFORMATION
  Report Type: 
  Country: None (occurrence: None)
  Receive Date: 20090605
  Receipt Date: 20090603
  Transmission Date: 20091009
  Serious: Yes (Hospitalization)
  Sender: FDA-Public Use
  Company Number: US-BRISTOL-MYERS SQUIBB COMPANY-14268320

PATIENT
  Age: 43 Year
  Sex: Male
  Weight: 84 kg

DRUGS (19)
  1. ERBITUX [Suspect]
     Indication: ANAL CANCER
     Dosage: INITIATED:07-APR08,ASSOCIATED WITH EXPEDIATED REPORT:27-MAY08.END DATE-14JUL08:TOTAL DOSE-1445MG
     Dates: start: 20080630, end: 20080630
  2. CISPLATIN [Suspect]
     Indication: ANAL CANCER
     Dosage: INITIATED:07-APR08,ASSOCIATED WITH EXPEDIATED REPORT:27-MAY08.
     Route: 042
     Dates: start: 20080630, end: 20080630
  3. FLUOROURACIL [Suspect]
     Indication: ANAL CANCER
     Dosage: INITIATED:07-APR08,ASSOCIATED WITH EXPEDIATED REPORT:27-MAY08. END DATE 03JUL08 TOTAL DOSE-8080MG
     Route: 042
     Dates: start: 20080703, end: 20080703
  4. RADIATION THERAPY [Suspect]
     Indication: ANAL CANCER
     Dosage: 1 DOSAGE FORM=4638CGY. NO OF FRACTION 30;NO OF ELAPSED DAYS:42.
     Dates: start: 20080630, end: 20080714
  5. ACLOVATE [Concomitant]
  6. ATIVAN [Concomitant]
  7. CIPRO [Concomitant]
  8. CLINDAMYCIN [Concomitant]
  9. COMPAZINE [Concomitant]
  10. DILAUDID [Concomitant]
  11. DOXYCYCLINE [Concomitant]
  12. FLAGYL [Concomitant]
  13. HYDROCORTISONE [Concomitant]
     Route: 061
  14. LAMICTAL [Concomitant]
  15. OXYCONTIN [Concomitant]
  16. SENOKOT [Concomitant]
  17. TRAZODONE HCL [Concomitant]
  18. WELLBUTRIN [Concomitant]
  19. ZOFRAN [Concomitant]

REACTIONS (12)
  - ANOREXIA [None]
  - DERMATITIS ACNEIFORM [None]
  - DIARRHOEA [None]
  - DIZZINESS [None]
  - FATIGUE [None]
  - HEADACHE [None]
  - NAUSEA [None]
  - PROCTALGIA [None]
  - PROCTITIS [None]
  - PYREXIA [None]
  - RADIATION SKIN INJURY [None]
  - VOMITING [None]
